FAERS Safety Report 11684120 (Version 2)
Quarter: 2015Q4

REPORT INFORMATION
  Report Type: Other
  Country: FR (occurrence: FR)
  Receive Date: 20151029
  Receipt Date: 20151103
  Transmission Date: 20160304
  Serious: Yes (Life-Threatening, Hospitalization, Other)
  Sender: FDA-Public Use
  Company Number: FR-TAKEDA-2015MPI007130

PATIENT

DRUGS (7)
  1. LOVENOX [Concomitant]
     Active Substance: ENOXAPARIN SODIUM
     Indication: PRODUCT USED FOR UNKNOWN INDICATION
     Dosage: 0.4 ML, UNK
     Route: 058
  2. DEXAMETHASONE. [Suspect]
     Active Substance: DEXAMETHASONE
     Indication: CHEMOTHERAPY
     Dosage: UNK
     Route: 065
  3. VALACICLOVIR [Concomitant]
     Active Substance: VALACYCLOVIR HYDROCHLORIDE
     Indication: PRODUCT USED FOR UNKNOWN INDICATION
     Dosage: 500 MG, BID
     Route: 048
  4. FENTANYL. [Suspect]
     Active Substance: FENTANYL
     Indication: PRODUCT USED FOR UNKNOWN INDICATION
     Dosage: 200 ?G, UNK
     Route: 048
     Dates: end: 20150611
  5. VELCADE [Suspect]
     Active Substance: BORTEZOMIB
     Indication: CHEMOTHERAPY
     Dosage: UNK
     Route: 065
  6. THALIDOMIDE [Suspect]
     Active Substance: THALIDOMIDE
     Indication: CHEMOTHERAPY
     Dosage: UNK
     Route: 065
  7. DUROGESIC [Suspect]
     Active Substance: FENTANYL
     Indication: PRODUCT USED FOR UNKNOWN INDICATION
     Dosage: UNK, TID
     Route: 062
     Dates: start: 20150611

REACTIONS (2)
  - Dyspnoea [Recovered/Resolved]
  - Hypercapnic coma [Recovered/Resolved]

NARRATIVE: CASE EVENT DATE: 20150611
